FAERS Safety Report 7641501-2 (Version None)
Quarter: 2011Q3

REPORT INFORMATION
  Report Type: 
  Country: None (occurrence: None)
  Receive Date: 20110728
  Receipt Date: 20110711
  Transmission Date: 20111222
  Serious: No
  Sender: FDA-Public Use
  Company Number: US-B.I. PHARMACEUTICALS,INC./RIDGEFIELD-2011-BP-10618BP

PATIENT
  Age: 83 Year
  Sex: Male

DRUGS (2)
  1. ACE INHIBITOR [Concomitant]
     Indication: HYPERTENSION
  2. FLOMAX [Suspect]
     Indication: BENIGN PROSTATIC HYPERPLASIA
     Dosage: 0.4 MG
     Route: 048

REACTIONS (7)
  - FAECES DISCOLOURED [None]
  - DIZZINESS [None]
  - PROSTATIC DISORDER [None]
  - JOINT SWELLING [None]
  - FREQUENT BOWEL MOVEMENTS [None]
  - BLOOD PRESSURE DECREASED [None]
  - OEDEMA PERIPHERAL [None]
